FAERS Safety Report 19507957 (Version 1)
Quarter: 2021Q3

REPORT INFORMATION
  Report Type: Spontaneous
  Country: CA (occurrence: CA)
  Receive Date: 20210708
  Receipt Date: 20210708
  Transmission Date: 20211014
  Serious: Yes (Life-Threatening, Hospitalization, Other)
  Sender: FDA-Public Use
  Company Number: CA-ALLERGAN-2124895US

PATIENT
  Sex: Female

DRUGS (5)
  1. BOTOX [Suspect]
     Active Substance: ONABOTULINUMTOXINA
     Indication: TORTICOLLIS
     Dosage: 60 UNITS, SINGLE
     Dates: start: 20210601, end: 20210601
  2. BOTOX [Suspect]
     Active Substance: ONABOTULINUMTOXINA
     Dosage: 60 UNITS, SINGLE
  3. BOTOX [Suspect]
     Active Substance: ONABOTULINUMTOXINA
     Dosage: 60 UNITS, SINGLE
  4. BOTOX [Suspect]
     Active Substance: ONABOTULINUMTOXINA
     Dosage: 60 UNITS, SINGLE
     Dates: start: 20210601, end: 20210601
  5. CARBIDOPA AND LEVODOPA [Concomitant]
     Active Substance: CARBIDOPA\LEVODOPA
     Dosage: 25?100 MG 1.5 TAB EACH 3.5 HOURS

REACTIONS (5)
  - Condition aggravated [Unknown]
  - Dyspnoea [Unknown]
  - Stridor [Unknown]
  - Choking [Unknown]
  - Vocal cord paresis [Recovered/Resolved]

NARRATIVE: CASE EVENT DATE: 20210606
